FAERS Safety Report 11276872 (Version 1)
Quarter: 2015Q3

REPORT INFORMATION
  Report Type: Spontaneous
  Country: US (occurrence: None)
  Receive Date: 20150715
  Receipt Date: 20150715
  Transmission Date: 20151125
  Serious: Yes (Disabling)
  Sender: FDA-Public Use
  Company Number: None

PATIENT
  Age: 16 Year
  Sex: Female

DRUGS (4)
  1. ANA-HISTAMINE [Concomitant]
  2. L-GLUTATHIONE [Concomitant]
     Active Substance: GLUTATHIONE
  3. ESCITALOPRAM [Suspect]
     Active Substance: ESCITALOPRAM OXALATE
     Indication: ANXIETY
     Route: 048
     Dates: start: 2010, end: 2015
  4. FLORINEF SEASONIQUE [Concomitant]

REACTIONS (5)
  - Educational problem [None]
  - Postural orthostatic tachycardia syndrome [None]
  - Orthostatic intolerance [None]
  - Chronic fatigue syndrome [None]
  - Impaired work ability [None]
